FAERS Safety Report 5671296-3 (Version None)
Quarter: 2008Q1

REPORT INFORMATION
  Report Type: 
  Country: None (occurrence: None)
  Receive Date: 20080318
  Receipt Date: 20080307
  Transmission Date: 20080703
  Serious: Yes (Hospitalization)
  Sender: FDA-Public Use
  Company Number: DE-PFIZER INC-2008022870

PATIENT
  Sex: Male

DRUGS (2)
  1. ZYVOX [Suspect]
     Indication: ABDOMINAL SEPSIS
  2. MERONEM [Suspect]
     Indication: ABDOMINAL SEPSIS

REACTIONS (1)
  - CHOLESTASIS [None]
